FAERS Safety Report 5251665-6 (Version None)
Quarter: 2007Q1

REPORT INFORMATION
  Report Type: 
  Country: None (occurrence: None)
  Receive Date: 20070228
  Receipt Date: 20061013
  Transmission Date: 20070707
  Serious: No
  Sender: FDA-Public Use
  Company Number: US-GLAXOSMITHKLINE-A0622636A

PATIENT
  Age: 80 Year
  Sex: Male

DRUGS (10)
  1. LAMICTAL [Suspect]
     Indication: BIPOLAR DISORDER
     Dosage: 25MG VARIABLE DOSE
     Route: 048
     Dates: start: 20060901
  2. FERROUS SULFATE [Concomitant]
  3. POTASSIUM ACETATE [Concomitant]
  4. PROSCAR [Concomitant]
  5. NORVASC [Concomitant]
  6. LITHIUM CARBONATE [Concomitant]
  7. ZOCOR [Concomitant]
  8. FLOMAX [Concomitant]
  9. TEMAZEPAM [Concomitant]
  10. ARICEPT [Concomitant]

REACTIONS (1)
  - RASH [None]
